FAERS Safety Report 4873313-7 (Version None)
Quarter: 2005Q4

REPORT INFORMATION
  Report Type: 
  Country: None (occurrence: None)
  Receive Date: 20051201
  Receipt Date: 20050804
  Transmission Date: 20060501
  Serious: No
  Sender: FDA-Public Use
  Company Number: 2005PV000898

PATIENT
  Age: 68 Year
  Sex: Female

DRUGS (7)
  1. BYETTA [Suspect]
     Indication: DIABETES MELLITUS NON-INSULIN-DEPENDENT
     Dosage: SEE IMAGE
     Route: 058
     Dates: start: 20050727
  2. BYETTA [Suspect]
     Indication: DIABETES MELLITUS NON-INSULIN-DEPENDENT
     Dosage: SEE IMAGE
     Route: 058
     Dates: start: 20050801
  3. GLUCOPHAGE [Concomitant]
  4. ACCUPRIL [Concomitant]
  5. HYDROCHLOROTHIAZIDE [Concomitant]
  6. NORVASC [Concomitant]
  7. XANAX [Concomitant]

REACTIONS (10)
  - ABDOMINAL DISTENSION [None]
  - ABDOMINAL PAIN UPPER [None]
  - DIARRHOEA [None]
  - DYSGEUSIA [None]
  - FEELING JITTERY [None]
  - FLATULENCE [None]
  - GASTRIC DISORDER [None]
  - GASTRIC HYPERMOTILITY [None]
  - NERVOUSNESS [None]
  - SOMNOLENCE [None]
